FAERS Safety Report 26129140 (Version 1)
Quarter: 2025Q4

REPORT INFORMATION
  Report Type: Spontaneous
  Country: US (occurrence: US)
  Receive Date: 20251208
  Receipt Date: 20251208
  Transmission Date: 20260118
  Serious: No
  Sender: Kenvue
  Company Number: US-KENVUE-20251103751

PATIENT
  Sex: Male

DRUGS (19)
  1. TYLENOL [Suspect]
     Active Substance: ACETAMINOPHEN
     Indication: Muscle spasms
     Dosage: UNK
     Route: 065
  2. REMODULIN [Concomitant]
     Active Substance: TREPROSTINIL
     Indication: Pulmonary arterial hypertension
     Dosage: 0.0225 MICROGRAM/KILOGRAM CONTINUING
  3. REMODULIN [Concomitant]
     Active Substance: TREPROSTINIL
     Dosage: 0.00428 MICROGRAM/KILOGRAM
  4. REMODULIN [Concomitant]
     Active Substance: TREPROSTINIL
     Dosage: 0.00571 MICROGRAM/KILOGRAM
  5. REMODULIN [Concomitant]
     Active Substance: TREPROSTINIL
     Dosage: 0.01285 MICROGRAM/KILOGRAM
  6. REMODULIN [Concomitant]
     Active Substance: TREPROSTINIL
     Dosage: UNK, CONTINUING
  7. REMODULIN [Concomitant]
     Active Substance: TREPROSTINIL
     Dosage: 0.00893 MICROGRAM/KILOGRAM
  8. REMODULIN [Concomitant]
     Active Substance: TREPROSTINIL
     Dosage: 0.01999 MICROGRAM/KILOGRAM
  9. REMODULIN [Concomitant]
     Active Substance: TREPROSTINIL
     Dosage: UNK
  10. TREPROSTINIL SODIUM [Concomitant]
     Active Substance: TREPROSTINIL SODIUM
     Indication: Pulmonary arterial hypertension
     Dosage: 0.00225 MICROGRAM/KILOGRAM
  11. TREPROSTINIL SODIUM [Concomitant]
     Active Substance: TREPROSTINIL SODIUM
     Dosage: 0.00428 MICROGRAM/KILOGRAM
  12. TREPROSTINIL SODIUM [Concomitant]
     Active Substance: TREPROSTINIL SODIUM
     Dosage: UNK
  13. UPTRAVI [Concomitant]
     Active Substance: SELEXIPAG
     Indication: Product used for unknown indication
     Dosage: UNK
     Route: 065
  14. LIDOCAINE\PRILOCAINE [Concomitant]
     Active Substance: LIDOCAINE\PRILOCAINE
     Indication: Product used for unknown indication
     Route: 065
  15. BUMEX [Concomitant]
     Active Substance: BUMETANIDE
     Indication: Oedema peripheral
     Dosage: 2 MILLIGRAM, THRICE A DAY
     Route: 065
     Dates: start: 202509
  16. c-formulation d w/clonidine 0.1% [Concomitant]
     Indication: Product used for unknown indication
     Route: 065
  17. TRIAMCINOLONE ACETONIDE [Concomitant]
     Active Substance: TRIAMCINOLONE ACETONIDE
     Indication: Product used for unknown indication
     Route: 065
  18. WINREVAIR [Concomitant]
     Active Substance: SOTATERCEPT-CSRK
     Indication: Product used for unknown indication
     Dosage: 0.7 MILLILITER (0.7ML SQ FOR 1 DOSE) ( EACH DOSE SHOULD BE GIVEN 3 WEEKS APART)
  19. WINREVAIR [Concomitant]
     Active Substance: SOTATERCEPT-CSRK
     Dosage: 1.6 MILLILITER (INCREASE TO 1.6ML FOR TARGET DOSE) ( EACH DOSE SHOULD BE GIVEN 3 WEEKS APART)

REACTIONS (1)
  - Therapeutic product effect incomplete [Unknown]

NARRATIVE: CASE EVENT DATE: 20250101
